FAERS Safety Report 19196894 (Version 1)
Quarter: 2021Q2

REPORT INFORMATION
  Report Type: Spontaneous
  Country: US (occurrence: US)
  Receive Date: 20210429
  Receipt Date: 20210429
  Transmission Date: 20210717
  Serious: No
  Sender: FDA-Public Use
  Company Number: US-ALKERMES INC.-ALK-2021-001178

PATIENT
  Age: 23 Year
  Sex: Female
  Weight: 186.85 kg

DRUGS (2)
  1. ARISTADA [Suspect]
     Active Substance: ARIPIPRAZOLE LAUROXIL
     Indication: SCHIZOPHRENIA
     Dosage: 662 MILLIGRAM, QMO
     Route: 030
     Dates: start: 20210224
  2. ARIPIPRAZOLE. [Concomitant]
     Active Substance: ARIPIPRAZOLE
     Indication: SCHIZOPHRENIA
     Dosage: UNK
     Route: 048

REACTIONS (2)
  - Hyperemesis gravidarum [Unknown]
  - Pregnancy [Unknown]

NARRATIVE: CASE EVENT DATE: 2021
